FAERS Safety Report 16196694 (Version 1)
Quarter: 2019Q2

REPORT INFORMATION
  Report Type: Spontaneous
  Country: US (occurrence: US)
  Receive Date: 20190415
  Receipt Date: 20190415
  Transmission Date: 20190711
  Serious: Yes (Hospitalization)
  Sender: FDA-Public Use
  Company Number: US-MYLANLABS-2019M1034456

PATIENT
  Age: 29 Year
  Sex: Male

DRUGS (2)
  1. TRENBOLONE [Suspect]
     Active Substance: TRENBOLONE
     Indication: PRODUCT USED FOR UNKNOWN INDICATION
     Dosage: 1.5CC
     Route: 058
  2. TESTOSTERONE. [Suspect]
     Active Substance: TESTOSTERONE
     Indication: PRODUCT USED FOR UNKNOWN INDICATION
     Dosage: 2 CC
     Route: 058

REACTIONS (2)
  - Acne conglobata [Recovering/Resolving]
  - Drug abuse [Recovering/Resolving]
